FAERS Safety Report 7957902-9 (Version None)
Quarter: 2011Q4

REPORT INFORMATION
  Report Type: 
  Country: None (occurrence: None)
  Receive Date: 20111205
  Receipt Date: 20111123
  Transmission Date: 20120403
  Serious: Yes (Hospitalization, Other)
  Sender: FDA-Public Use
  Company Number: GB-B.I. PHARMACEUTICALS,INC./RIDGEFIELD-2011-UK-01276UK

PATIENT
  Age: 74 Year
  Sex: Male

DRUGS (1)
  1. TRAJENTA [Suspect]
     Dosage: 5 MG
     Route: 048
     Dates: start: 20111022

REACTIONS (1)
  - MYOCLONUS [None]
